FAERS Safety Report 8609535-9 (Version None)
Quarter: 2012Q3

REPORT INFORMATION
  Report Type: 
  Country: None (occurrence: None)
  Receive Date: 20120821
  Receipt Date: 20120814
  Transmission Date: 20120928
  Serious: Yes (Congenital Anomaly)
  Sender: FDA-Public Use
  Company Number: US-GILEAD-2012-0058033

PATIENT
  Sex: Male

DRUGS (7)
  1. ZIDOVUDINE [Suspect]
     Indication: HIV INFECTION
     Dosage: 2 MG/KG, Q1HR
     Route: 064
     Dates: start: 20120611, end: 20120611
  2. TRIMETHOPRIM + SULFAMETHOXAZOLE [Concomitant]
     Indication: PRODUCT USED FOR UNKNOWN INDICATION
     Route: 064
  3. EMTRICITABINE/TENOFOVIR DISOPROXIL FUMARATE [Suspect]
     Indication: HIV INFECTION
     Dosage: 1 DF, QD
     Route: 064
     Dates: start: 20111101, end: 20120611
  4. LOPINAVIR/RITONAVIR [Suspect]
     Indication: HIV INFECTION
     Dosage: 4 DF, QD
     Route: 064
     Dates: start: 20120112, end: 20120611
  5. LOSARTAN POTASSIUM [Concomitant]
     Indication: HYPERTENSION
     Route: 064
  6. ZIDOVUDINE [Suspect]
     Dosage: 1 MG/KG, Q1HR
     Route: 064
     Dates: start: 20120611, end: 20120611
  7. LOPINAVIR/RITONAVIR [Suspect]
     Dosage: 6 DF, QD
     Route: 064
     Dates: start: 20111101, end: 20120112

REACTIONS (1)
  - CLEFT LIP AND PALATE [None]
